FAERS Safety Report 6530719-8 (Version None)
Quarter: 2010Q1

REPORT INFORMATION
  Report Type: 
  Country: None (occurrence: None)
  Receive Date: 20100108
  Receipt Date: 20081211
  Transmission Date: 20100710
  Serious: No
  Sender: FDA-Public Use
  Company Number: A0760203A

PATIENT
  Age: 4 Year
  Sex: Female

DRUGS (1)
  1. LOVAZA [Suspect]
     Dosage: 3CAP SINGLE DOSE
     Route: 048
     Dates: start: 20081211

REACTIONS (2)
  - ABDOMINAL PAIN [None]
  - ACCIDENTAL EXPOSURE [None]
